FAERS Safety Report 17110253 (Version 1)
Quarter: 2019Q4

REPORT INFORMATION
  Report Type: Spontaneous
  Country: US (occurrence: US)
  Receive Date: 20191204
  Receipt Date: 20191204
  Transmission Date: 20200122
  Serious: Yes (Other)
  Sender: FDA-Public Use
  Company Number: US-PFIZER INC-2019519990

PATIENT
  Age: 84 Year
  Sex: Female

DRUGS (1)
  1. TIKOSYN [Suspect]
     Active Substance: DOFETILIDE
     Indication: ATRIAL FIBRILLATION
     Dosage: 125 UG, 2X/DAY

REACTIONS (8)
  - Drug effective for unapproved indication [Unknown]
  - Peripheral vascular disorder [Unknown]
  - Fatigue [Unknown]
  - Pulmonary hypertension [Unknown]
  - Idiopathic pulmonary fibrosis [Unknown]
  - Electrocardiogram QT prolonged [Recovering/Resolving]
  - Cough [Unknown]
  - Off label use [Unknown]
